FAERS Safety Report 22943265 (Version 2)
Quarter: 2023Q4

REPORT INFORMATION
  Report Type: Spontaneous
  Country: FR (occurrence: FR)
  Receive Date: 20230914
  Receipt Date: 20231012
  Transmission Date: 20240109
  Serious: Yes (Death, Hospitalization, Other)
  Sender: FDA-Public Use
  Company Number: FR-SANDOZ-NVSC2023FR146386

PATIENT
  Age: 78 Year
  Sex: Female
  Weight: 60 kg

DRUGS (7)
  1. PALBOCICLIB [Suspect]
     Active Substance: PALBOCICLIB
     Indication: Breast cancer
     Dosage: 75 MG, QD (CYCLE 14)
     Route: 048
     Dates: start: 20220526, end: 20230615
  2. LETROZOLE [Suspect]
     Active Substance: LETROZOLE
     Indication: Breast cancer
     Dosage: 2.5 MG, QD
     Route: 065
     Dates: start: 20220526, end: 20230616
  3. XARELTO [Concomitant]
     Active Substance: RIVAROXABAN
     Indication: Product used for unknown indication
     Dosage: 20 UNK, QD
     Route: 048
     Dates: start: 20230617
  4. COVERAM [Concomitant]
     Active Substance: AMLODIPINE\PERINDOPRIL
     Indication: Product used for unknown indication
     Dosage: UNK
     Route: 065
  5. LIPTRUZET [Concomitant]
     Active Substance: ATORVASTATIN CALCIUM\EZETIMIBE
     Indication: Product used for unknown indication
     Dosage: UNK
     Route: 065
  6. AMIODARONE [Concomitant]
     Active Substance: AMIODARONE
     Indication: Product used for unknown indication
     Dosage: 200 MG, QD
     Route: 065
     Dates: start: 20230617
  7. ALDACTAZINE [Concomitant]
     Active Substance: ALTHIAZIDE\SPIRONOLACTONE
     Indication: Product used for unknown indication
     Dosage: UNK
     Route: 065

REACTIONS (19)
  - Febrile neutropenia [Fatal]
  - Cardiac failure [Unknown]
  - Thrombocytopenia [Unknown]
  - Leukopenia [Unknown]
  - Oxygen saturation decreased [Unknown]
  - Neoplasm progression [Unknown]
  - Dyspnoea [Unknown]
  - Fatigue [Unknown]
  - General physical condition abnormal [Unknown]
  - Neutrophil count decreased [Unknown]
  - Pyrexia [Unknown]
  - Lymphocyte count decreased [Unknown]
  - Haemoglobin decreased [Unknown]
  - N-terminal prohormone brain natriuretic peptide increased [Unknown]
  - C-reactive protein increased [Unknown]
  - Crepitations [Unknown]
  - Protein total decreased [Unknown]
  - Blood sodium decreased [Unknown]
  - Blood phosphorus decreased [Unknown]

NARRATIVE: CASE EVENT DATE: 20230429
